FAERS Safety Report 6809842-6 (Version None)
Quarter: 2010Q2

REPORT INFORMATION
  Report Type: 
  Country: None (occurrence: None)
  Receive Date: 20100630
  Receipt Date: 20100624
  Transmission Date: 20101027
  Serious: Yes (Other)
  Sender: FDA-Public Use
  Company Number: US-BAYER-201017258BCC

PATIENT
  Sex: Male

DRUGS (1)
  1. ALEVE (CAPLET) [Suspect]
     Indication: NERVE COMPRESSION
     Dosage: UNIT DOSE: 220 MG
     Route: 048
     Dates: start: 20100101

REACTIONS (1)
  - FAECES DISCOLOURED [None]
